FAERS Safety Report 17091226 (Version 3)
Quarter: 2020Q3

REPORT INFORMATION
  Report Type: Spontaneous
  Country: JP (occurrence: JP)
  Receive Date: 20191129
  Receipt Date: 20200728
  Transmission Date: 20201102
  Serious: Yes (Hospitalization, Other)
  Sender: FDA-Public Use
  Company Number: JP-ASTELLAS-2019JP026527

PATIENT
  Age: 27 Year
  Sex: Female
  Weight: 52 kg

DRUGS (9)
  1. PREDNISOLONE. [Concomitant]
     Active Substance: PREDNISOLONE
     Dosage: 15 MG/DAY, UNKNOWN FREQ.
     Route: 065
     Dates: start: 2006
  2. PROGRAF [Suspect]
     Active Substance: TACROLIMUS
     Dosage: 4 MG/DAY, UNKNOWN FREQ.
     Route: 048
     Dates: start: 20191203
  3. PREDNISOLONE. [Concomitant]
     Active Substance: PREDNISOLONE
     Indication: RAYNAUD^S PHENOMENON
     Dosage: 30 MG/DAY, UNKNOWN FREQ.
     Route: 065
  4. PROGRAF [Suspect]
     Active Substance: TACROLIMUS
     Route: 048
     Dates: start: 20190322, end: 20191123
  5. PREDONINE [Suspect]
     Active Substance: PREDNISOLONE
     Indication: INTERSTITIAL LUNG DISEASE
     Route: 048
     Dates: start: 20120323
  6. PROGRAF [Suspect]
     Active Substance: TACROLIMUS
     Indication: INTERSTITIAL LUNG DISEASE
     Route: 048
     Dates: start: 20181122, end: 20190321
  7. TAKECAB [Suspect]
     Active Substance: VONOPRAZAN FUMARATE
     Indication: PROPHYLAXIS
     Route: 048
     Dates: start: 20180301
  8. PREDNISOLONE. [Concomitant]
     Active Substance: PREDNISOLONE
     Dosage: 8 MG/DAY, UNKNOWN FREQ.
     Route: 065
     Dates: start: 2006
  9. PREDNISOLONE. [Concomitant]
     Active Substance: PREDNISOLONE
     Dosage: 5 MG/DAY, UNKNOWN FREQ.
     Route: 065
     Dates: start: 20090925

REACTIONS (9)
  - Anaemia [Recovered/Resolved]
  - Hypoxia [Recovered/Resolved]
  - Maternal exposure during pregnancy [Unknown]
  - Gestational hypertension [Recovered/Resolved]
  - Obstructed labour [Recovered/Resolved]
  - Prolonged labour [Recovered/Resolved]
  - Retained placenta or membranes [Recovered/Resolved]
  - Caesarean section [Unknown]
  - Platelet count decreased [Recovered/Resolved]

NARRATIVE: CASE EVENT DATE: 20190530
